FAERS Safety Report 24872224 (Version 1)
Quarter: 2025Q1

REPORT INFORMATION
  Report Type: Spontaneous
  Country: US (occurrence: None)
  Receive Date: 20250122
  Receipt Date: 20250122
  Transmission Date: 20250408
  Serious: Yes (Hospitalization, Other)
  Sender: Alvotech
  Company Number: US-ALVOTECHPMS-2025-ALVOTECHPMS-002904

PATIENT
  Age: 28 Year
  Sex: Male

DRUGS (1)
  1. USTEKINUMAB [Suspect]
     Active Substance: USTEKINUMAB
     Indication: Crohn^s disease
     Route: 065

REACTIONS (1)
  - Myocarditis [Unknown]
